FAERS Safety Report 4323326-9 (Version None)
Quarter: 2004Q1

REPORT INFORMATION
  Report Type: 
  Country: None (occurrence: None)
  Receive Date: 20040323
  Receipt Date: 20031119
  Transmission Date: 20041129
  Serious: No
  Sender: FDA-Public Use
  Company Number: M03-341-165

PATIENT
  Age: 74 Year
  Sex: Female
  Weight: 65 kg

DRUGS (8)
  1. VELCADE [Suspect]
     Indication: MULTIPLE MYELOMA
     Dosage: 2 MG:  INTRAVENOUS BOLUS
     Route: 040
     Dates: start: 20031118
  2. ASPIRIN [Concomitant]
  3. AREDIA [Concomitant]
  4. HYZAAR [Concomitant]
  5. LOPRESSOR [Concomitant]
  6. PRIMARIN(ESTROGENS CONJUGATED) [Concomitant]
  7. PROCRIT (ERYTHROPOETIN) [Concomitant]
  8. SIMVASTATIN [Concomitant]

REACTIONS (1)
  - INFLUENZA LIKE ILLNESS [None]
